FAERS Safety Report 6919501-7 (Version None)
Quarter: 2010Q3

REPORT INFORMATION
  Report Type: 
  Country: None (occurrence: None)
  Receive Date: 20100729
  Receipt Date: 20100216
  Transmission Date: 20110219
  Serious: Yes (Other)
  Sender: FDA-Public Use
  Company Number: US-JNJFOC-20100207830

PATIENT

DRUGS (1)
  1. IMODIUM A-D [Suspect]
     Indication: DIARRHOEA
     Dosage: 20 MG, 1 IN 4 HOUR. ORAL
     Route: 048

REACTIONS (2)
  - FAECES HARD [None]
  - INTENTIONAL OVERDOSE [None]
